FAERS Safety Report 8500374-6 (Version None)
Quarter: 2012Q3

REPORT INFORMATION
  Report Type: 
  Country: None (occurrence: None)
  Receive Date: 20120710
  Receipt Date: 20120628
  Transmission Date: 20120928
  Serious: Yes (Hospitalization, Other)
  Sender: FDA-Public Use
  Company Number: DE-SANOFI-AVENTIS-2012SA040955

PATIENT
  Age: 65 Year
  Sex: Male
  Weight: 88 kg

DRUGS (4)
  1. CABAZITAXEL [Suspect]
     Route: 042
     Dates: start: 20120104, end: 20120104
  2. CABAZITAXEL [Suspect]
     Indication: PROSTATE CANCER METASTATIC
     Route: 042
     Dates: start: 20120530, end: 20120530
  3. PREDNISONE TAB [Suspect]
     Indication: PROSTATE CANCER METASTATIC
     Route: 048
     Dates: start: 20120104, end: 20120530
  4. BUSERELIN ACETATE [Concomitant]
     Indication: PROPHYLAXIS
     Route: 058
     Dates: start: 20111123

REACTIONS (2)
  - PAIN IN EXTREMITY [None]
  - PULMONARY EMBOLISM [None]
